FAERS Safety Report 6535705-X (Version None)
Quarter: 2010Q1

REPORT INFORMATION
  Report Type: 
  Country: None (occurrence: None)
  Receive Date: 20100113
  Receipt Date: 20100104
  Transmission Date: 20100710
  Serious: Yes (Hospitalization)
  Sender: FDA-Public Use
  Company Number: US-JNJFOC-20100102306

PATIENT
  Sex: Female

DRUGS (2)
  1. TYLENOL (CAPLET) [Suspect]
  2. TYLENOL (CAPLET) [Suspect]
     Indication: DRUG USE FOR UNKNOWN INDICATION

REACTIONS (6)
  - FOOD POISONING [None]
  - GASTROENTERITIS [None]
  - POOR QUALITY DRUG ADMINISTERED [None]
  - PRODUCT ODOUR ABNORMAL [None]
  - PRODUCT QUALITY ISSUE [None]
  - PRODUCT TASTE ABNORMAL [None]
